FAERS Safety Report 8106369 (Version 4)
Quarter: 2013Q3

REPORT INFORMATION
  Report Type: Spontaneous
  Country: US (occurrence: US)
  Receive Date: 20110825
  Receipt Date: 20130822
  Transmission Date: 20140515
  Serious: Yes (Hospitalization, Other)
  Sender: FDA-Public Use
  Company Number: US-BAYER-2011-075354

PATIENT
  Age: 18 Year
  Sex: Female
  Weight: 63.49 kg

DRUGS (6)
  1. YAZ [Suspect]
     Dosage: UNK
     Dates: start: 2008, end: 2008
  2. VICODIN [Concomitant]
  3. BABY ASPIRIN [Concomitant]
  4. PROMETHAZINE [Concomitant]
     Dosage: AS NEEDED
  5. PRENATAL VITAMINS [Concomitant]
  6. ZOFRAN [Concomitant]

REACTIONS (3)
  - Deep vein thrombosis [None]
  - Deep vein thrombosis [None]
  - Phlebitis superficial [None]
